FAERS Safety Report 8187806-0 (Version None)
Quarter: 2012Q1

REPORT INFORMATION
  Report Type: 
  Country: None (occurrence: None)
  Receive Date: 20120221
  Receipt Date: 20110817
  Transmission Date: 20120608
  Serious: Yes (Hospitalization)
  Sender: FDA-Public Use
  Company Number: PHEH2011US01914

PATIENT
  Age: 19 Year
  Sex: Male

DRUGS (1)
  1. TOBI [Suspect]
     Indication: CYSTIC FIBROSIS
     Dosage: 300 MG, TWICE DAILY FOR 28 DAYS AND THEN OFF FOR 28 DAYS, INHALATION
     Route: 055
     Dates: start: 20101228

REACTIONS (1)
  - PYREXIA [None]
